FAERS Safety Report 8772820 (Version 3)
Quarter: 2012Q4

REPORT INFORMATION
  Report Type: Report from Study
  Country: GB (occurrence: GB)
  Receive Date: 20120907
  Receipt Date: 20121016
  Transmission Date: 20130627
  Serious: Yes (Hospitalization, Other)
  Sender: FDA-Public Use
  Company Number: GB-PFIZER INC-2012216364

PATIENT
  Age: 46 Year
  Sex: Female

DRUGS (10)
  1. EPIRUBICIN HCL [Suspect]
     Indication: BREAST CANCER
  2. CYCLOPHOSPHAMIDE [Suspect]
     Indication: BREAST CANCER
  3. BLINDED THERAPY [Suspect]
     Indication: BREAST CANCER
     Dosage: 1 in 3 week
     Route: 042
     Dates: start: 20120319, end: 20120418
  4. BLINDED THERAPY [Suspect]
     Dosage: UNK
     Dates: start: 20120410
  5. DOCETAXEL [Suspect]
     Indication: BREAST CANCER
     Dosage: 75 mg/m2, every 3 weeks
     Route: 042
     Dates: start: 20120319, end: 20120418
  6. FLUOROURACIL [Suspect]
     Indication: BREAST CANCER
  7. TRASTUZUMAB [Suspect]
     Indication: BREAST CANCER
     Dosage: 6 mg/kg, every 3 weeks
     Route: 042
     Dates: start: 20120319, end: 20120418
  8. CARBOPLATIN [Concomitant]
     Indication: BREAST CANCER
     Dosage: 1 in 3 wk
     Route: 042
     Dates: start: 20120319, end: 20120418
  9. DEXAMETHASONE [Concomitant]
     Dosage: UNK
     Route: 048
     Dates: start: 20120318, end: 20120418
  10. RANITIDINE [Concomitant]
     Dosage: UNK
     Route: 048
     Dates: start: 20120318, end: 20120418

REACTIONS (2)
  - Adverse drug reaction [Recovered/Resolved]
  - Haemoglobin decreased [Recovered/Resolved]
